FAERS Safety Report 5209709-3 (Version None)
Quarter: 2007Q1

REPORT INFORMATION
  Report Type: 
  Country: None (occurrence: None)
  Receive Date: 20070116
  Receipt Date: 20070110
  Transmission Date: 20070707
  Serious: Yes (Hospitalization, Other)
  Sender: FDA-Public Use
  Company Number: US-BOEHRINGER INGELHEIM PHARMACEUTICALS, INC.-2007-BP-00417BP

PATIENT
  Age: 76 Year
  Sex: Female
  Weight: 48.99 kg

DRUGS (3)
  1. MICARDIS HCT [Suspect]
     Indication: HYPERTENSION
     Route: 048
     Dates: start: 20040301
  2. NIFEDIPINE [Concomitant]
     Indication: BLOOD PRESSURE
     Route: 048
     Dates: start: 20061101
  3. ASPIRIN [Concomitant]
     Indication: COLON CANCER
     Route: 048
     Dates: start: 20060201

REACTIONS (8)
  - BACK PAIN [None]
  - BLOOD GLUCOSE INCREASED [None]
  - BLOOD POTASSIUM DECREASED [None]
  - BLOOD PRESSURE DECREASED [None]
  - COLON CANCER [None]
  - DIARRHOEA [None]
  - PHARYNGOLARYNGEAL PAIN [None]
  - SOMNOLENCE [None]
